FAERS Safety Report 5714848-4 (Version None)
Quarter: 2008Q2

REPORT INFORMATION
  Report Type: 
  Country: None (occurrence: None)
  Receive Date: 20080423
  Receipt Date: 20070329
  Transmission Date: 20081010
  Serious: No
  Sender: FDA-Public Use
  Company Number: US-BAYER-US-2007-004104

PATIENT
  Age: 54 Year
  Sex: Female
  Weight: 84 kg

DRUGS (3)
  1. LEUKINE [Suspect]
     Indication: AUTOIMMUNE DISORDER
     Dosage: UNIT DOSE: 475 ?G
     Route: 058
     Dates: start: 20060825, end: 20070216
  2. LORTAB [Concomitant]
     Route: 048
  3. PREDNISONE [Concomitant]
     Dosage: UNIT DOSE: 120 MG
     Route: 048
     Dates: start: 20070202, end: 20070205

REACTIONS (2)
  - DRUG INEFFECTIVE [None]
  - WHITE BLOOD CELL COUNT DECREASED [None]
